FAERS Safety Report 6571132-7 (Version None)
Quarter: 2010Q1

REPORT INFORMATION
  Report Type: 
  Country: None (occurrence: None)
  Receive Date: 20100204
  Receipt Date: 20100127
  Transmission Date: 20100710
  Serious: Yes (Life-Threatening, Hospitalization)
  Sender: FDA-Public Use
  Company Number: TR-ELI_LILLY_AND_COMPANY-TR201002000133

PATIENT
  Sex: Female

DRUGS (4)
  1. HUMULIN N [Suspect]
     Indication: GESTATIONAL DIABETES
     Dosage: 16 U, EACH EVENING
     Route: 064
     Dates: start: 20090101, end: 20091128
  2. HUMULIN R [Suspect]
     Indication: GESTATIONAL DIABETES
     Dosage: 20 U, 3/D
     Route: 064
     Dates: start: 20090101, end: 20091128
  3. IRON [Concomitant]
     Dosage: UNK, DAILY (1/D)
     Route: 064
  4. VITAMINS NOS [Concomitant]
     Dosage: UNK, DAILY (1/D)
     Route: 064

REACTIONS (4)
  - DRUG EXPOSURE DURING PREGNANCY [None]
  - NEONATAL ANOXIA [None]
  - PERINATAL BRAIN DAMAGE [None]
  - PREMATURE BABY [None]
